FAERS Safety Report 7554644-9 (Version None)
Quarter: 2011Q2

REPORT INFORMATION
  Report Type: 
  Country: None (occurrence: None)
  Receive Date: 20110617
  Receipt Date: 20110614
  Transmission Date: 20111010
  Serious: Yes (Hospitalization, Other)
  Sender: FDA-Public Use
  Company Number: US-PFIZER INC-2011044471

PATIENT
  Sex: Female

DRUGS (4)
  1. CHANTIX [Suspect]
     Dosage: STARTER PACK AND CONTINUING PACKS
     Dates: start: 20080301, end: 20080501
  2. CHANTIX [Suspect]
     Indication: SMOKING CESSATION THERAPY
     Dosage: STARTER PACK AND CONTINUING PACKS
     Dates: start: 20080101, end: 20080201
  3. PREDNISONE [Concomitant]
     Indication: SCLERITIS
     Dosage: UNK
     Dates: start: 20030101, end: 20090101
  4. PAXIL [Concomitant]
     Indication: ANXIETY
     Dosage: UNK
     Dates: start: 20030101

REACTIONS (5)
  - MULTIPLE INJURIES [None]
  - LOSS OF CONSCIOUSNESS [None]
  - EXCORIATION [None]
  - ROAD TRAFFIC ACCIDENT [None]
  - CONTUSION [None]
